FAERS Safety Report 10751848 (Version 2)
Quarter: 2015Q2

REPORT INFORMATION
  Report Type: Spontaneous
  Country: FR (occurrence: FR)
  Receive Date: 20150130
  Receipt Date: 20150626
  Transmission Date: 20150821
  Serious: Yes (Hospitalization, Other)
  Sender: FDA-Public Use
  Company Number: FR-PFIZER INC-2015036003

PATIENT
  Age: 75 Year
  Sex: Female

DRUGS (9)
  1. CARDENSIEL [Suspect]
     Active Substance: BISOPROLOL FUMARATE
     Indication: HYPERTENSION
     Dosage: UNK
     Route: 048
     Dates: end: 201407
  2. XANAX [Concomitant]
     Active Substance: ALPRAZOLAM
  3. ZOLOFT [Suspect]
     Active Substance: SERTRALINE HYDROCHLORIDE
     Indication: DEPRESSION
     Dosage: UNK
     Route: 048
     Dates: end: 201407
  4. HYDREA [Suspect]
     Active Substance: HYDROXYUREA
     Indication: THROMBOCYTOPENIA
     Dosage: 500 MG, 1X/DAY
     Route: 048
     Dates: start: 2009, end: 20140807
  5. LYSANXIA [Suspect]
     Active Substance: PRAZEPAM
     Dosage: 5 MG, 1X/DAY
     Route: 048
     Dates: start: 2012, end: 20140810
  6. NOCTAMIDE [Suspect]
     Active Substance: LORMETAZEPAM
     Dosage: 2 MG, 1X/DAY
     Route: 048
     Dates: start: 2012, end: 20140813
  7. INEXIUM [Suspect]
     Active Substance: ESOMEPRAZOLE
     Dosage: 40 MG, 1X/DAY
     Dates: start: 2012, end: 20140807
  8. ATARAX [Concomitant]
     Active Substance: HYDROXYZINE\HYDROXYZINE HYDROCHLORIDE
  9. KARDEGIC [Concomitant]
     Active Substance: ASPIRIN LYSINE
     Indication: MYOCARDIAL ISCHAEMIA
     Dosage: UNK

REACTIONS (3)
  - Cutaneous lupus erythematosus [Recovered/Resolved]
  - Pleural effusion [Unknown]
  - Pulmonary mass [Unknown]

NARRATIVE: CASE EVENT DATE: 201406
